FAERS Safety Report 5889277-3 (Version None)
Quarter: 2008Q3

REPORT INFORMATION
  Report Type: 
  Country: None (occurrence: None)
  Receive Date: 20080919
  Receipt Date: 20080818
  Transmission Date: 20090109
  Serious: Yes (Hospitalization)
  Sender: FDA-Public Use
  Company Number: FR-PURDUE-GBR_2008_0004343

PATIENT
  Age: 58 Year
  Sex: Male

DRUGS (4)
  1. MORPHINE SULFATE INJ [Suspect]
     Indication: SUICIDE ATTEMPT
     Dosage: 1400 MG, UNK
     Route: 048
     Dates: start: 20080630, end: 20080630
  2. NOVONORM [Concomitant]
     Indication: SUICIDE ATTEMPT
     Dosage: 34 MG, UNK
     Route: 048
     Dates: start: 20080630
  3. TAHOR [Concomitant]
     Indication: SUICIDE ATTEMPT
     Dosage: 100 MG, UNK
     Route: 048
     Dates: start: 20080630
  4. MISCARDIPLUS [Concomitant]
     Indication: SUICIDE ATTEMPT
     Dosage: 800 MG, UNK
     Route: 048
     Dates: start: 20080630

REACTIONS (1)
  - COMA [None]
